FAERS Safety Report 12747197 (Version 3)
Quarter: 2018Q1

REPORT INFORMATION
  Report Type: Spontaneous
  Country: US (occurrence: US)
  Receive Date: 20160915
  Receipt Date: 20180126
  Transmission Date: 20180508
  Serious: Yes (Hospitalization, Other)
  Sender: FDA-Public Use
  Company Number: US-SAOL THERAPEUTICS-2016SAO00319

PATIENT
  Age: 51 Year
  Sex: Female
  Weight: 68.27 kg

DRUGS (62)
  1. CALCIUM 500MG / VITAMIN D 200 IU [Concomitant]
     Dosage: 1 TABLETS, 2X/DAY
     Route: 048
  2. CHOLECALCIFEROL [Concomitant]
     Active Substance: CHOLECALCIFEROL
     Dosage: 1000 IU, 1X/DAY
     Route: 048
  3. DULOXETINE HCL [Concomitant]
     Active Substance: DULOXETINE HYDROCHLORIDE
     Dosage: 30 MG, 2X/DAY
     Route: 048
  4. FLUOCINOLONE ACETONIDE. [Concomitant]
     Active Substance: FLUOCINOLONE ACETONIDE
     Dosage: 5 GTT, 2X/DAY
  5. MOMETASONE FUROATE. [Concomitant]
     Active Substance: MOMETASONE FUROATE
     Dosage: UNK, 1X/DAY
     Route: 045
  6. PHOSPHATES ENEMA [Concomitant]
     Active Substance: SODIUM PHOSPHATE, DIBASIC\SODIUM PHOSPHATE, MONOBASIC
     Route: 054
  7. PROCHLORPERAZINE. [Concomitant]
     Active Substance: PROCHLORPERAZINE
     Dosage: 5 MG, UP TO 4X/DAY
     Route: 048
  8. RANITIDINE HCL [Concomitant]
     Active Substance: RANITIDINE HYDROCHLORIDE
     Dosage: 150 MG, 2X/DAY
     Route: 048
  9. TEMAZEPAM. [Concomitant]
     Active Substance: TEMAZEPAM
     Dosage: 15 MG, 1X/DAY
     Route: 048
  10. TRIAMCINOLONE ACETONIDE. [Concomitant]
     Active Substance: TRIAMCINOLONE ACETONIDE
     Dosage: UNK, 2X/DAY
     Route: 061
  11. VALACYCLOVIR HCL [Concomitant]
     Active Substance: VALACYCLOVIR HYDROCHLORIDE
     Dosage: 1000 MG, 2X/DAY
  12. IMITREX [Concomitant]
     Active Substance: SUMATRIPTAN SUCCINATE
     Dosage: 1 UNK, AS NEEDED
     Route: 058
  13. LIORESAL [Suspect]
     Active Substance: BACLOFEN
     Dosage: 1800 ?G, \DAY
     Route: 037
  14. LIORESAL [Suspect]
     Active Substance: BACLOFEN
     Dosage: 1799.9 ?G, \DAY
     Dates: start: 20160912
  15. ASCORBIC ACID. [Concomitant]
     Active Substance: ASCORBIC ACID
     Dosage: 1000 MG, 4X/DAY
  16. CETIRIZINE HCL [Concomitant]
     Active Substance: CETIRIZINE HYDROCHLORIDE
     Dosage: 10 MG, 1X/DAY
  17. DIPHENHYDRAMINE HCL 12.5MG/5ML ELIXIR [Concomitant]
     Dosage: 5 ML, UP TO 2X/DAY
     Route: 048
  18. LACTULOSE 10GM/15ML ORAL SOLUTION [Concomitant]
     Dosage: 45 ML, 2X/DAY
     Route: 048
  19. MUPIROCIN. [Concomitant]
     Active Substance: MUPIROCIN
     Dosage: UNK, 2X/DAY
     Route: 061
  20. POTASSIUM BICARBONATE 25MEQ [Concomitant]
     Dosage: 50 MEQ, 1X/DAY
     Route: 048
  21. QUETIAPINE FUMARATE. [Concomitant]
     Active Substance: QUETIAPINE FUMARATE
     Dosage: 50 MG, 1X/DAY
     Route: 048
  22. SUMATRIPTAN SUCC [Concomitant]
     Active Substance: SUMATRIPTAN SUCCINATE
     Route: 058
  23. LIDODERM [Concomitant]
     Active Substance: LIDOCAINE
     Dosage: 3 DOSAGE UNITS, 2X/DAY
     Route: 061
  24. MULTIVITAMIN [Concomitant]
     Active Substance: VITAMINS
     Dosage: 1 DOSAGE UNITS, 1X/DAY
     Route: 048
  25. OXYBUTYNIN 3% GEL PUMP [Concomitant]
     Route: 061
  26. SODIUM CHLORIDE 0.65% SOLUTION NASAL SPRAY [Concomitant]
     Dosage: UNK, 4X/DAY
     Route: 045
  27. TOLTERODINE TARTRATE. [Concomitant]
     Active Substance: TOLTERODINE TARTRATE
     Dosage: 4 MG, 1X/DAY
     Route: 048
  28. LIORESAL [Suspect]
     Active Substance: BACLOFEN
     Indication: MULTIPLE SCLEROSIS
     Dosage: 1698.4 ?G, \DAY
     Dates: start: 20160614
  29. LIORESAL [Suspect]
     Active Substance: BACLOFEN
     Dosage: 1799.9 ?G, \DAY
     Dates: start: 20160721
  30. DIAZEPAM. [Concomitant]
     Active Substance: DIAZEPAM
     Dosage: 10 MG, 4X/DAY
  31. FLUOCINONIDE 0.05% CREAM [Concomitant]
     Active Substance: FLUOCINONIDE
     Dosage: UNK, 2X/DAY
     Route: 061
  32. IPRATROPIUM BR [Concomitant]
     Dosage: UNK, 2X/DAY
     Route: 045
  33. ZOFRAN [Concomitant]
     Active Substance: ONDANSETRON HYDROCHLORIDE
     Dosage: 1 TABLETS, 3X/DAY
  34. ABILIFY [Concomitant]
     Active Substance: ARIPIPRAZOLE
     Dosage: 0.5 TABLETS, 1X/DAY
  35. AMITRIPTYLINE [Concomitant]
     Active Substance: AMITRIPTYLINE
     Dosage: 25 MG, 1X/DAY
     Route: 048
  36. FUROSEMIDE. [Concomitant]
     Active Substance: FUROSEMIDE
     Dosage: 160 MG, 1X/DAY
  37. LIDOCAINE 5% PATCH [Concomitant]
     Active Substance: LIDOCAINE
  38. METHENAMINE HIPPURATE. [Concomitant]
     Active Substance: METHENAMINE HIPPURATE
     Dosage: 1 G, 2X/DAY
  39. PERCOCET [Concomitant]
     Active Substance: ACETAMINOPHEN\OXYCODONE HYDROCHLORIDE
     Dosage: 1 TABLETS, 2X/DAY
     Route: 048
  40. POLY-ENEMA RTL (COMPOUNDED) [Concomitant]
     Dosage: UNK, AS NEEDED
     Route: 054
  41. SINUS RINSE NEILMED PACKET [Concomitant]
     Dosage: UNK, 4X/DAY
  42. TERBINAFINE HCL CREAM [Concomitant]
     Dosage: UNK, 2X/DAY
     Route: 061
  43. ALBUTEROL 90MCG [Concomitant]
     Dosage: UNK, UP TO 4X/DAY
  44. HYDROCORTISONE CREAM [Concomitant]
     Active Substance: HYDROCORTISONE
     Dosage: UNK, 2X/DAY
     Route: 061
  45. VITAMIN B COMPLEX / VITAMIN C [Concomitant]
     Dosage: 1 DOSAGE UNITS, 1X/DAY
     Route: 048
  46. BENADRYL [Concomitant]
     Active Substance: DIPHENHYDRAMINE HYDROCHLORIDE
     Dosage: 0.5 CAPSULES, AS NEEDED
  47. ACYCLOVIR 5% OINTMENT [Concomitant]
     Active Substance: ACYCLOVIR
     Dosage: UNK, 5X/DAY
     Route: 061
  48. AMOXICILLIN 875 / CLAV K 125MG [Concomitant]
     Dosage: 1 TABLETS, 2X/DAY
     Route: 048
  49. ARIPIPRAZOLE. [Concomitant]
     Active Substance: ARIPIPRAZOLE
     Dosage: 10 MG, 2X/DAY
  50. BACLOFEN. [Concomitant]
     Active Substance: BACLOFEN
     Dosage: 20 MG, 3X/DAY
  51. DOCUSATE NA 50MG / SENNOSIDES 8.6MG [Concomitant]
     Dosage: 2 TABLETS, 3X/DAY
     Route: 048
  52. OMEPRAZOLE. [Concomitant]
     Active Substance: OMEPRAZOLE
     Dosage: 40 MG, 2X/DAY
  53. ONDANSETRON HCL [Concomitant]
     Active Substance: ONDANSETRON HYDROCHLORIDE
     Dosage: 4 MG, 3X/DAY
  54. SPIRONOLACTONE. [Concomitant]
     Active Substance: SPIRONOLACTONE
     Dosage: 25 MG, 1X/DAY
     Route: 048
  55. LIORESAL [Suspect]
     Active Substance: BACLOFEN
     Indication: MUSCLE SPASTICITY
     Dosage: 1900.4 ?G /DAY
     Dates: start: 20160517
  56. ARMODAFINIL. [Concomitant]
     Active Substance: ARMODAFINIL
     Dosage: 250 MG, 1X/DAY
     Route: 048
  57. BIOTENE MOUTHWASH [Concomitant]
     Active Substance: CETYLPYRIDINIUM CHLORIDE
     Dosage: UNK, 2X/DAY
  58. DICLOFENAC NA 1% TOPICAL GEL [Concomitant]
     Dosage: UNK, 3X/DAY
     Route: 061
  59. POLYVINYL ALC 1.4% OPT SOLUTION [Concomitant]
     Dosage: UNK, 2X/DAY
     Route: 047
  60. RIFAXIMIN. [Concomitant]
     Active Substance: RIFAXIMIN
     Dosage: 200 MG, 2X/DAY
     Route: 048
  61. SODIUM FLUORIDE DENTAL CREAM [Concomitant]
     Dosage: UNK, 2X/DAY
  62. CYMBALTA [Concomitant]
     Active Substance: DULOXETINE HYDROCHLORIDE
     Dosage: 30 MG, 2X/DAY

REACTIONS (37)
  - Hypersomnia [Unknown]
  - Nephrolithiasis [Unknown]
  - Staphylococcal infection [Unknown]
  - Hepatic steatosis [Unknown]
  - Insomnia [Unknown]
  - Hydronephrosis [Unknown]
  - Device damage [Unknown]
  - Hypersensitivity [Unknown]
  - Scoliosis [Unknown]
  - Spinal osteoarthritis [Unknown]
  - Chills [Unknown]
  - Implant site extravasation [Unknown]
  - Memory impairment [Unknown]
  - Hiatus hernia [Unknown]
  - Implant site pruritus [Unknown]
  - Nerve root compression [Unknown]
  - Nausea [Unknown]
  - Implant site infection [Unknown]
  - Implant site swelling [Unknown]
  - Constipation [Unknown]
  - Back pain [Unknown]
  - Peripheral swelling [Unknown]
  - Muscular weakness [Unknown]
  - Malaise [Unknown]
  - Gastroenteritis [Recovered/Resolved]
  - Weight decreased [Unknown]
  - Vomiting [Unknown]
  - Muscle spasticity [Unknown]
  - Implant site pain [Unknown]
  - Alanine aminotransferase increased [Unknown]
  - Haemorrhage [Unknown]
  - Weight increased [Unknown]
  - Faecaloma [Unknown]
  - Hypotonia [Unknown]
  - Urinary incontinence [Unknown]
  - Muscle spasms [Unknown]
  - Device dislocation [Unknown]

NARRATIVE: CASE EVENT DATE: 2016
